FAERS Safety Report 12912965 (Version 1)
Quarter: 2016Q4

REPORT INFORMATION
  Report Type: Report from Study
  Country: US (occurrence: US)
  Receive Date: 20161104
  Receipt Date: 20161104
  Transmission Date: 20170207
  Serious: Yes (Hospitalization)
  Sender: FDA-Public Use
  Company Number: US-GUERBET LLC-1059243

PATIENT
  Age: 63 Year
  Sex: Male

DRUGS (1)
  1. CONRAY 30 [Suspect]
     Active Substance: IOTHALAMATE MEGLUMINE
     Indication: IMAGING PROCEDURE
     Route: 037

REACTIONS (9)
  - Staring [Recovered/Resolved]
  - Dyspnoea [Recovered/Resolved]
  - Hallucination [Recovered/Resolved]
  - Incorrect route of drug administration [Recovered/Resolved]
  - Speech disorder [Recovered/Resolved]
  - Somnolence [Recovered/Resolved]
  - Disorientation [Recovered/Resolved]
  - Epilepsy [Recovered/Resolved]
  - Mental status changes [Recovered/Resolved]
